FAERS Safety Report 17484248 (Version 1)
Quarter: 2020Q1

REPORT INFORMATION
  Report Type: Spontaneous
  Country: SE (occurrence: SE)
  Receive Date: 20200302
  Receipt Date: 20200302
  Transmission Date: 20200409
  Serious: Yes (Death, Hospitalization)
  Sender: FDA-Public Use
  Company Number: SE-ELI_LILLY_AND_COMPANY-SE202002012806

PATIENT
  Age: 76 Year
  Sex: Male

DRUGS (1)
  1. OLUMIANT [Suspect]
     Active Substance: BARICITINIB
     Indication: RHEUMATOID ARTHRITIS
     Dosage: UNK, UNKNOWN
     Route: 065
     Dates: start: 20190528, end: 20191205

REACTIONS (5)
  - Multiple organ dysfunction syndrome [Fatal]
  - Otitis externa [Unknown]
  - Mastoiditis [Unknown]
  - Campylobacter sepsis [Unknown]
  - Sepsis [Fatal]

NARRATIVE: CASE EVENT DATE: 201906
